FAERS Safety Report 21161545 (Version 1)
Quarter: 2022Q3

REPORT INFORMATION
  Report Type: Spontaneous
  Country: AT (occurrence: AT)
  Receive Date: 20220802
  Receipt Date: 20220802
  Transmission Date: 20221027
  Serious: Yes (Hospitalization)
  Sender: FDA-Public Use
  Company Number: AT-ROCHE-3049355

PATIENT
  Age: 45 Year
  Sex: Female
  Weight: 65 kg

DRUGS (38)
  1. PACLITAXEL [Suspect]
     Active Substance: PACLITAXEL
     Indication: HER2 positive breast cancer
     Dosage: 1 TIME PER WEEK, ROA-20045000
     Route: 042
     Dates: start: 20181017, end: 20200226
  2. CAPECITABINE [Suspect]
     Active Substance: CAPECITABINE
     Indication: HER2 positive breast cancer
     Dosage: 2 TIMES PER DAY, ROA-20053000
     Route: 048
     Dates: start: 20200715, end: 202109
  3. DENOSUMAB [Suspect]
     Active Substance: DENOSUMAB
     Indication: HER2 positive breast cancer
     Dosage: 1 TIME PER 4 WEEKS, ROA-20066000
     Route: 058
     Dates: start: 20190326
  4. TRASTUZUMAB [Suspect]
     Active Substance: TRASTUZUMAB
     Indication: HER2 positive breast cancer
     Dosage: 1 TIME PER 3 WEEKS
     Dates: start: 20181016, end: 20200226
  5. LAPATINIB [Suspect]
     Active Substance: LAPATINIB
     Indication: HER2 positive breast cancer
     Dosage: 1 TIME PER DAY, ROA-20053000
     Route: 048
     Dates: start: 20200715, end: 20210804
  6. VINORELBINE [Suspect]
     Active Substance: VINORELBINE TARTRATE
     Indication: HER2 positive breast cancer
     Dosage: DAY1+DAY8 FROM 28 DAYS, ROA-20045000
     Route: 042
     Dates: start: 20210927
  7. PERTUZUMAB [Suspect]
     Active Substance: PERTUZUMAB
     Indication: HER2 positive breast cancer
     Dosage: 1 TIME PER 3 WEEKS, ROA-20045000
     Route: 042
     Dates: start: 20181016, end: 20200226
  8. TRASTUZUMAB [Suspect]
     Active Substance: TRASTUZUMAB
     Indication: HER2 positive breast cancer
     Dosage: 1 TIME PER 3 WEEKS, ROA-20045000
     Route: 042
     Dates: start: 20200227, end: 20200703
  9. LEVETIRACETAM [Concomitant]
     Active Substance: LEVETIRACETAM
     Indication: Product used for unknown indication
     Dosage: 1-0-1, ROA-20053000
     Route: 048
     Dates: start: 20211125
  10. LACTULOSE [Concomitant]
     Active Substance: LACTULOSE
     Indication: Product used for unknown indication
     Dosage: 1 UNIT AS NECESSARY, ROA-20053000
     Route: 048
     Dates: start: 20200826
  11. POLYETHYLENE GLYCOL 3350\POTASSIUM CHLORIDE\SODIUM BICARBONATE\SODIUM [Concomitant]
     Active Substance: POLYETHYLENE GLYCOL 3350\POTASSIUM CHLORIDE\SODIUM BICARBONATE\SODIUM CHLORIDE
     Indication: Product used for unknown indication
     Dosage: ONCE DAILY, ROA-20053000
     Route: 048
     Dates: start: 20181023
  12. AMDINOCILLIN [Concomitant]
     Active Substance: AMDINOCILLIN
     Indication: Product used for unknown indication
     Dosage: 3 TIMES PER DAY, ROA-20053000
     Route: 048
     Dates: start: 20191016, end: 20191020
  13. BUPRETEC [Concomitant]
     Indication: Product used for unknown indication
     Dosage: 35.00 OTHER MCG/H?1 TIME PER 4 DAYS, ROA-20070000
     Route: 062
     Dates: start: 20211025
  14. HYDROMORPHONE HYDROCHLORIDE [Concomitant]
     Active Substance: HYDROMORPHONE HYDROCHLORIDE
     Indication: Product used for unknown indication
     Dosage: ROA-20053000
     Route: 048
     Dates: start: 20200826, end: 20200917
  15. HYDROMORPHONE HYDROCHLORIDE [Concomitant]
     Active Substance: HYDROMORPHONE HYDROCHLORIDE
     Dosage: ROA-20053000
     Route: 048
     Dates: start: 20200826, end: 20200917
  16. HYDROMORPHONE HYDROCHLORIDE [Concomitant]
     Active Substance: HYDROMORPHONE HYDROCHLORIDE
     Dosage: ONCE AS NECESSARY, ROA-20053000
     Route: 048
     Dates: start: 20211027
  17. DEXAMETHASONE [Concomitant]
     Active Substance: DEXAMETHASONE
     Indication: Product used for unknown indication
     Dates: start: 20211105
  18. DIPYRONE [Concomitant]
     Active Substance: DIPYRONE
     Indication: Product used for unknown indication
  19. RANITIDINE HYDROCHLORIDE [Concomitant]
     Active Substance: RANITIDINE HYDROCHLORIDE
     Indication: Product used for unknown indication
     Dosage: 1 TIME PER WEEK, ROA-20045000
     Route: 042
     Dates: start: 20181017, end: 20200703
  20. EMEND [Concomitant]
     Active Substance: APREPITANT
     Indication: Product used for unknown indication
     Dosage: 1 TIME PER WEEK, ROA-20053000
     Route: 048
     Dates: start: 20181120, end: 20200703
  21. ZOFRAN [Concomitant]
     Active Substance: ONDANSETRON HYDROCHLORIDE
     Indication: Product used for unknown indication
     Dosage: 1 TIME PER WEEK, ROA-20045000
     Route: 042
     Dates: start: 20181017, end: 20200703
  22. ASTEC [BUPRENORPHINE] [Concomitant]
     Indication: Product used for unknown indication
     Dosage: ONCE EVERY 3 DAYS, ROA-20070000
     Route: 062
     Dates: start: 20181023
  23. ZOFRAN [Concomitant]
     Active Substance: ONDANSETRON HYDROCHLORIDE
     Indication: Product used for unknown indication
     Dosage: 1-0-1, ROA-20067000
     Route: 060
     Dates: start: 20181023
  24. DIPRODERM [BETAMETHASONE DIPROPIONATE] [Concomitant]
     Indication: Product used for unknown indication
     Dosage: ROA-20045000
     Route: 042
     Dates: start: 20200703
  25. DIPRODERM [BETAMETHASONE DIPROPIONATE] [Concomitant]
     Dosage: ONCE DAILY, ROA-20085000
     Route: 061
     Dates: start: 20190108, end: 20190114
  26. CAPSAICIN [Concomitant]
     Active Substance: CAPSAICIN
     Indication: Product used for unknown indication
     Dosage: ROA-20085000
     Route: 061
     Dates: start: 20200826, end: 20200917
  27. FUSIDIC ACID [Concomitant]
     Active Substance: FUSIDIC ACID
     Indication: Product used for unknown indication
     Dosage: 3 TIMES PER DAY, ROA-20053000
     Route: 048
     Dates: start: 20181113, end: 20181120
  28. CLINDAMYCIN [Concomitant]
     Active Substance: CLINDAMYCIN
     Indication: Product used for unknown indication
     Dosage: 2-2-2, ROA-20053000
     Route: 048
     Dates: start: 20181113, end: 20181119
  29. BANEOCIN [BACITRACIN;NEOMYCIN SULFATE] [Concomitant]
     Indication: Product used for unknown indication
     Dosage: ONCE DAILY, ROA-20085000
     Route: 061
     Dates: start: 20190108, end: 20190114
  30. PANTOPRAZOLE SODIUM [Concomitant]
     Active Substance: PANTOPRAZOLE SODIUM
     Indication: Product used for unknown indication
  31. BUPRENORPHINE HYDROCHLORIDE [Concomitant]
     Active Substance: BUPRENORPHINE HYDROCHLORIDE
     Indication: Product used for unknown indication
     Dosage: 1 TIME AS NECESSARY, ROA-20067000
     Route: 060
     Dates: start: 20181023
  32. DIPHENHYDRAMINE HYDROCHLORIDE [Concomitant]
     Active Substance: DIPHENHYDRAMINE HYDROCHLORIDE
     Indication: Product used for unknown indication
     Dosage: 1 TIME PER WEEK, ROA-20045000
     Route: 042
     Dates: start: 20200703
  33. METOCLOPRAMIDE HYDROCHLORIDE [Concomitant]
     Active Substance: METOCLOPRAMIDE HYDROCHLORIDE
     Indication: Product used for unknown indication
     Dosage: 1-1-1, ROA-20053000
     Route: 048
     Dates: start: 20181023
  34. NEURONTIN [Concomitant]
     Active Substance: GABAPENTIN
     Indication: Product used for unknown indication
     Dates: start: 20211027
  35. AMOXICILLIN\CLAVULANATE POTASSIUM [Concomitant]
     Active Substance: AMOXICILLIN\CLAVULANATE POTASSIUM
     Indication: Product used for unknown indication
     Dosage: 2 TIMES PER DAY, ROA-20053000
     Route: 048
     Dates: start: 20190926, end: 20191005
  36. PARACODIN [DIHYDROCODEINE] [Concomitant]
     Indication: Product used for unknown indication
     Dosage: 20-20-20, ROA-20053000
     Route: 048
     Dates: start: 20180715
  37. NOVALGIN (METAMIZOLE SODIUM) [Concomitant]
     Active Substance: METAMIZOLE SODIUM
     Indication: Product used for unknown indication
     Dosage: 2-2-2, ROA-20053000
     Route: 048
     Dates: start: 20181023
  38. CANDESARTAN [Concomitant]
     Active Substance: CANDESARTAN
     Indication: Product used for unknown indication

REACTIONS (1)
  - Cerebral vasoconstriction [Recovering/Resolving]

NARRATIVE: CASE EVENT DATE: 20211025
